FAERS Safety Report 8798503 (Version 1)
Quarter: 2012Q4

REPORT INFORMATION
  Report Type: Spontaneous
  Country: US (occurrence: None)
  Receive Date: 20120917
  Receipt Date: 20120917
  Transmission Date: 20130627
  Serious: Yes (Other)
  Sender: FDA-Public Use
  Company Number: None

PATIENT
  Age: 55 Year
  Sex: Female
  Weight: 71.67 kg

DRUGS (1)
  1. ZYRTEC [Suspect]
     Indication: SINUS HEADACHE
     Dosage: 10 mg 1x po
     Route: 048

REACTIONS (5)
  - Mood altered [None]
  - Headache [None]
  - Anger [None]
  - Personality change [None]
  - Fatigue [None]
